FAERS Safety Report 7358230-5 (Version None)
Quarter: 2011Q1

REPORT INFORMATION
  Report Type: 
  Country: None (occurrence: None)
  Receive Date: 20110314
  Receipt Date: 20110314
  Transmission Date: 20110831
  Serious: Yes (Hospitalization, Other)
  Sender: FDA-Public Use
  Company Number: None

PATIENT
  Sex: Female
  Weight: 67.586 kg

DRUGS (2)
  1. MULTIHANCE [Suspect]
     Indication: NUCLEAR MAGNETIC RESONANCE IMAGING
     Dosage: 13 ML ONCE IV
     Route: 042
     Dates: start: 20110218, end: 20110218
  2. MULTIHANCE [Suspect]
     Indication: CONVULSION
     Dosage: 13 ML ONCE IV
     Route: 042
     Dates: start: 20110218, end: 20110218

REACTIONS (7)
  - MALAISE [None]
  - CHEST PAIN [None]
  - INCONTINENCE [None]
  - CONVULSION [None]
  - DYSPNOEA [None]
  - FALL [None]
  - VOMITING [None]
